FAERS Safety Report 21602725 (Version 2)
Quarter: 2022Q4

REPORT INFORMATION
  Report Type: Report from Study
  Country: CN (occurrence: CN)
  Receive Date: 20221116
  Receipt Date: 20221124
  Transmission Date: 20230112
  Serious: Yes (Hospitalization)
  Sender: FDA-Public Use
  Company Number: CN-PFIZER INC-PV202200102139

PATIENT
  Age: 23 Year
  Sex: Male
  Weight: 71 kg

DRUGS (15)
  1. CYTARABINE [Suspect]
     Active Substance: CYTARABINE
     Indication: Acute myeloid leukaemia
     Dosage: 1700 MG, 1X/DAY, REGIMEN 1
     Route: 041
     Dates: start: 20220626, end: 20220630
  2. CYTARABINE [Suspect]
     Active Substance: CYTARABINE
     Dosage: 3600 MG, Q12H, REGIMEN 2
     Route: 041
     Dates: start: 20220813, end: 20220813
  3. CYTARABINE [Suspect]
     Active Substance: CYTARABINE
     Dosage: 3600 MG, Q12 H, REGIMEN 3
     Route: 041
     Dates: start: 20220815, end: 20220815
  4. CYTARABINE [Suspect]
     Active Substance: CYTARABINE
     Dosage: 3600 MG, Q12 H, REGIMEN 4
     Route: 041
     Dates: start: 20220817, end: 20220818
  5. CYTARABINE [Suspect]
     Active Substance: CYTARABINE
     Dosage: 3600 MG, Q12 H, REGIMEN 5
     Route: 041
     Dates: start: 20220925, end: 20220925
  6. CYTARABINE [Suspect]
     Active Substance: CYTARABINE
     Dosage: 3600 MG, Q12 H, REGIMEN 6
     Route: 041
     Dates: start: 20220927, end: 20220927
  7. CYTARABINE [Suspect]
     Active Substance: CYTARABINE
     Dosage: 3600 MG, Q12 H, REGIMEN 7
     Route: 041
     Dates: start: 20220929, end: 20220929
  8. INVESTIGATIONAL PRODUCT [Suspect]
     Active Substance: INVESTIGATIONAL PRODUCT
     Indication: Acute myeloid leukaemia
     Dosage: UNK UNK, 1X/DAY
     Route: 041
     Dates: start: 20220625, end: 20220625
  9. INVESTIGATIONAL PRODUCT [Suspect]
     Active Substance: INVESTIGATIONAL PRODUCT
     Dosage: UNK UNK, 2X/DAY
     Route: 041
     Dates: start: 20220626, end: 20220702
  10. INVESTIGATIONAL PRODUCT [Suspect]
     Active Substance: INVESTIGATIONAL PRODUCT
     Dosage: UNK UNK, 1X/DAY
     Route: 041
     Dates: start: 20220812, end: 20220812
  11. INVESTIGATIONAL PRODUCT [Suspect]
     Active Substance: INVESTIGATIONAL PRODUCT
     Dosage: UNK UNK, 2X/DAY
     Route: 041
     Dates: start: 20220813, end: 20220819
  12. INVESTIGATIONAL PRODUCT [Suspect]
     Active Substance: INVESTIGATIONAL PRODUCT
     Dosage: UNK UNK, 1X/DAY
     Route: 041
     Dates: start: 20220924, end: 20220924
  13. INVESTIGATIONAL PRODUCT [Suspect]
     Active Substance: INVESTIGATIONAL PRODUCT
     Dosage: UNK UNK, 2X/DAY
     Route: 041
     Dates: start: 20220925, end: 20221001
  14. MITOXANTRONE [Concomitant]
     Active Substance: MITOXANTRONE HYDROCHLORIDE
     Indication: Acute myeloid leukaemia
     Dosage: 10.2 MG, 1X/DAY, 25/12.5 MILLIGRAM PER MILLILITRE
     Route: 041
     Dates: start: 20220626, end: 20220630
  15. ETOPOSIDE [Concomitant]
     Active Substance: ETOPOSIDE
     Indication: Acute myeloid leukaemia
     Dosage: 170 MG, 1X/DAY, 0.1/5 GRAM PER MILLILITRE
     Route: 041
     Dates: start: 20220626, end: 20220628

REACTIONS (1)
  - Sudden hearing loss [Recovered/Resolved with Sequelae]

NARRATIVE: CASE EVENT DATE: 20221018
